FAERS Safety Report 6689371-3 (Version None)
Quarter: 2010Q2

REPORT INFORMATION
  Report Type: 
  Country: None (occurrence: None)
  Receive Date: 20100419
  Receipt Date: 20100419
  Transmission Date: 20101027
  Serious: No
  Sender: FDA-Public Use
  Company Number: None

PATIENT
  Age: 78 Year
  Sex: Female

DRUGS (1)
  1. OLMESARTAN MEDOXOMIL [Suspect]

REACTIONS (3)
  - ABDOMINAL PAIN [None]
  - BLOOD PRESSURE SYSTOLIC INCREASED [None]
  - HEADACHE [None]
